FAERS Safety Report 25956518 (Version 1)
Quarter: 2025Q4

REPORT INFORMATION
  Report Type: Spontaneous
  Country: JP (occurrence: JP)
  Receive Date: 20251024
  Receipt Date: 20251024
  Transmission Date: 20260118
  Serious: Yes (Other)
  Sender: BAYER HEALTHCARE PHARMACEUTICALS INC.
  Company Number: JP-BAYER-2025A140312

PATIENT

DRUGS (1)
  1. VITRAKVI [Suspect]
     Active Substance: LAROTRECTINIB
     Indication: NTRK gene fusion cancer
     Dosage: UNK
     Dates: end: 202509

REACTIONS (4)
  - Metastases to liver [None]
  - Metastases to central nervous system [None]
  - Liver disorder [None]
  - Hepatic function abnormal [None]

NARRATIVE: CASE EVENT DATE: 20250901
